FAERS Safety Report 19389489 (Version 1)
Quarter: 2021Q2

REPORT INFORMATION
  Report Type: Spontaneous
  Country: FR (occurrence: FR)
  Receive Date: 20210608
  Receipt Date: 20210608
  Transmission Date: 20210717
  Serious: Yes (Life-Threatening, Hospitalization)
  Sender: FDA-Public Use
  Company Number: FR-BRISTOL-MYERS SQUIBB COMPANY-BMS-2021-053559

PATIENT
  Age: 79 Year
  Sex: Male
  Weight: 85 kg

DRUGS (10)
  1. FUROSEMIDE. [Concomitant]
     Active Substance: FUROSEMIDE
     Indication: PRODUCT USED FOR UNKNOWN INDICATION
     Route: 065
  2. INNOHEP [Concomitant]
     Active Substance: TINZAPARIN SODIUM
     Indication: PRODUCT USED FOR UNKNOWN INDICATION
     Route: 065
  3. AMLODIPINE [Concomitant]
     Active Substance: AMLODIPINE BESYLATE
     Indication: PRODUCT USED FOR UNKNOWN INDICATION
     Route: 065
  4. VALSARTAN. [Concomitant]
     Active Substance: VALSARTAN
     Indication: PRODUCT USED FOR UNKNOWN INDICATION
     Route: 065
  5. URAPIDIL [Concomitant]
     Active Substance: URAPIDIL
     Indication: PRODUCT USED FOR UNKNOWN INDICATION
     Route: 065
  6. ELIQUIS [Suspect]
     Active Substance: APIXABAN
     Indication: CEREBROVASCULAR ACCIDENT PROPHYLAXIS
     Dosage: 2.5 MILLIGRAM
     Route: 048
     Dates: end: 20210406
  7. COUMADINE [Suspect]
     Active Substance: WARFARIN SODIUM
     Indication: ATRIAL FIBRILLATION
     Dosage: 5 MILLIGRAM, DAILY DOSE
     Route: 048
     Dates: end: 20210406
  8. KARDEGIC [Suspect]
     Active Substance: ASPIRIN DL-LYSINE
     Indication: ISCHAEMIC STROKE
     Dosage: UNK
     Route: 048
  9. XULTOPHY 100/3.6 [Concomitant]
     Active Substance: INSULIN DEGLUDEC\LIRAGLUTIDE
     Indication: PRODUCT USED FOR UNKNOWN INDICATION
     Route: 065
  10. METOPROLOL. [Concomitant]
     Active Substance: METOPROLOL
     Indication: PRODUCT USED FOR UNKNOWN INDICATION
     Route: 065

REACTIONS (4)
  - Condition aggravated [Recovering/Resolving]
  - Epistaxis [Recovering/Resolving]
  - Off label use [Unknown]
  - Anaemia [Recovering/Resolving]

NARRATIVE: CASE EVENT DATE: 20210301
